FAERS Safety Report 4945134-8 (Version None)
Quarter: 2006Q1

REPORT INFORMATION
  Report Type: 
  Country: None (occurrence: None)
  Receive Date: 20060316
  Receipt Date: 20060309
  Transmission Date: 20060701
  Serious: Yes (Life-Threatening, Hospitalization)
  Sender: FDA-Public Use
  Company Number: US-KINGPHARMUSA00001-K200600323

PATIENT
  Age: 2 Month
  Sex: Female
  Weight: 6 kg

DRUGS (1)
  1. FLORINEF [Suspect]
     Indication: ADRENOGENITAL SYNDROME
     Dosage: .3 MG, QD

REACTIONS (2)
  - BLOOD POTASSIUM INCREASED [None]
  - BLOOD SODIUM DECREASED [None]
